FAERS Safety Report 23346748 (Version 2)
Quarter: 2024Q1

REPORT INFORMATION
  Report Type: Spontaneous
  Country: CA (occurrence: CA)
  Receive Date: 20231228
  Receipt Date: 20240108
  Transmission Date: 20240410
  Serious: Yes (Other)
  Sender: FDA-Public Use
  Company Number: CA-PFIZER INC-202300219600

PATIENT
  Age: 49 Year
  Sex: Female
  Weight: 80.2 kg

DRUGS (7)
  1. RUXIENCE [Suspect]
     Active Substance: RITUXIMAB-PVVR
     Indication: Granulomatosis with polyangiitis
     Dosage: 1000 MG, (730 MG, WEEKLY FOR 4 WEEKS) FIRST DOSE
     Route: 042
     Dates: start: 20230608
  2. RUXIENCE [Suspect]
     Active Substance: RITUXIMAB-PVVR
     Dosage: 1000 MG, FIRST DOSE (730 MG, WEEKLY FOR 4 WEEKS)
     Route: 042
     Dates: start: 20230608
  3. RUXIENCE [Suspect]
     Active Substance: RITUXIMAB-PVVR
     Dosage: 730 MG, WEEKLY
     Route: 042
     Dates: start: 20230622, end: 20230622
  4. RUXIENCE [Suspect]
     Active Substance: RITUXIMAB-PVVR
     Dosage: 730 MG, WEEKLY
     Route: 042
     Dates: start: 20230622, end: 20230622
  5. RUXIENCE [Suspect]
     Active Substance: RITUXIMAB-PVVR
     Dosage: 730 MG, WEEKLY (WEEKLY FOR 4 WEEKS)
     Route: 042
     Dates: start: 20230629
  6. RUXIENCE [Suspect]
     Active Substance: RITUXIMAB-PVVR
     Dosage: 730 MG, WEEKLY (WEEKLY FOR 4 WEEKS)
     Route: 042
     Dates: start: 20230629
  7. BISOPROLOL [Concomitant]
     Active Substance: BISOPROLOL\BISOPROLOL FUMARATE
     Dosage: UNK

REACTIONS (3)
  - Rash [Unknown]
  - Colitis [Recovering/Resolving]
  - Condition aggravated [Not Recovered/Not Resolved]

NARRATIVE: CASE EVENT DATE: 20230101
